FAERS Safety Report 21299140 (Version 2)
Quarter: 2022Q3

REPORT INFORMATION
  Report Type: Report from Study
  Country: FR (occurrence: FR)
  Receive Date: 20220906
  Receipt Date: 20220920
  Transmission Date: 20221027
  Serious: Yes (Death, Life-Threatening, Hospitalization, Other)
  Sender: FDA-Public Use
  Company Number: FR-TAKEDA-2022TUS061819

PATIENT
  Sex: Female

DRUGS (11)
  1. TEDUGLUTIDE [Suspect]
     Active Substance: TEDUGLUTIDE
     Indication: Short-bowel syndrome
     Dosage: UNK
     Route: 042
  2. TEDUGLUTIDE [Suspect]
     Active Substance: TEDUGLUTIDE
     Indication: Short-bowel syndrome
     Dosage: UNK
     Route: 042
  3. TEDUGLUTIDE [Suspect]
     Active Substance: TEDUGLUTIDE
     Indication: Short-bowel syndrome
     Dosage: UNK
     Route: 042
  4. TEDUGLUTIDE [Suspect]
     Active Substance: TEDUGLUTIDE
     Indication: Short-bowel syndrome
     Dosage: UNK
     Route: 042
  5. TEDUGLUTIDE [Suspect]
     Active Substance: TEDUGLUTIDE
     Dosage: 1.5 MILLIGRAM, 1/WEEK
     Route: 042
     Dates: start: 20200213, end: 202006
  6. TEDUGLUTIDE [Suspect]
     Active Substance: TEDUGLUTIDE
     Dosage: 1.5 MILLIGRAM, 1/WEEK
     Route: 042
     Dates: start: 20200213, end: 202006
  7. TEDUGLUTIDE [Suspect]
     Active Substance: TEDUGLUTIDE
     Dosage: 1.5 MILLIGRAM, 1/WEEK
     Route: 042
     Dates: start: 20200213, end: 202006
  8. TEDUGLUTIDE [Suspect]
     Active Substance: TEDUGLUTIDE
     Dosage: 1.5 MILLIGRAM, 1/WEEK
     Route: 042
     Dates: start: 20200213, end: 202006
  9. OFLOXACIN [Concomitant]
     Active Substance: OFLOXACIN
     Indication: Systemic infection
     Dosage: 200 MILLIGRAM, QD
     Route: 048
     Dates: start: 20210629, end: 20210708
  10. GENTAMICIN [Concomitant]
     Active Substance: GENTAMICIN
     Indication: Systemic infection
     Dosage: 100 MILLIGRAM
     Route: 050
     Dates: start: 20210629, end: 20210708
  11. CIPROFLOXACIN [Concomitant]
     Active Substance: CIPROFLOXACIN
     Indication: Vascular device infection
     Dosage: 200 MILLIGRAM, BID
     Route: 042
     Dates: start: 20200807, end: 20200814

REACTIONS (1)
  - Renal failure [Fatal]

NARRATIVE: CASE EVENT DATE: 20200920
